FAERS Safety Report 12360684 (Version 2)
Quarter: 2016Q2

REPORT INFORMATION
  Report Type: Spontaneous
  Country: CN (occurrence: CN)
  Receive Date: 20160512
  Receipt Date: 20160520
  Transmission Date: 20160815
  Serious: Yes (Other)
  Sender: FDA-Public Use
  Company Number: CN-ELI_LILLY_AND_COMPANY-CN201605003649

PATIENT
  Age: 30 Year
  Sex: Male
  Weight: 45 kg

DRUGS (2)
  1. CIALIS [Suspect]
     Active Substance: TADALAFIL
     Dosage: UNK, OTHER (1/4 TO 1/5 TABLET EVERY OTHER DAY)
     Route: 048
  2. CIALIS [Suspect]
     Active Substance: TADALAFIL
     Indication: ERECTILE DYSFUNCTION
     Dosage: 5 MG, QD
     Route: 048
     Dates: start: 20160412

REACTIONS (4)
  - Pruritus [Unknown]
  - Wrong technique in product usage process [Unknown]
  - Back pain [Unknown]
  - Arrhythmia [Unknown]
